FAERS Safety Report 18252801 (Version 1)
Quarter: 2020Q3

REPORT INFORMATION
  Report Type: Spontaneous
  Country: US (occurrence: US)
  Receive Date: 20200910
  Receipt Date: 20200910
  Transmission Date: 20201103
  Serious: No
  Sender: FDA-Public Use
  Company Number: US-ASTRAZENECA-2020SF03828

PATIENT
  Sex: Female

DRUGS (1)
  1. BYDUREON BCISE [Suspect]
     Active Substance: EXENATIDE
     Indication: DIABETES MELLITUS MANAGEMENT
     Route: 058
     Dates: start: 20200728

REACTIONS (3)
  - Blood glucose increased [Unknown]
  - Wrong technique in device usage process [Unknown]
  - Device leakage [Unknown]
